FAERS Safety Report 25312206 (Version 2)
Quarter: 2025Q2

REPORT INFORMATION
  Report Type: Spontaneous
  Country: US (occurrence: US)
  Receive Date: 20250510
  Receipt Date: 20250522
  Transmission Date: 20250717
  Serious: Yes (Disabling, Other)
  Sender: NOVO NORDISK
  Company Number: US-NOVOPROD-1417181

PATIENT
  Age: 77 Year
  Sex: Male

DRUGS (2)
  1. OZEMPIC [Suspect]
     Active Substance: SEMAGLUTIDE
     Indication: Diabetes mellitus
     Dosage: 1 MG, QW
     Route: 058
     Dates: start: 202405
  2. OZEMPIC [Suspect]
     Active Substance: SEMAGLUTIDE
     Route: 058

REACTIONS (5)
  - Dental implantation [Unknown]
  - Disability [Unknown]
  - Pain [Unknown]
  - Constipation [Unknown]
  - Inappropriate schedule of product administration [Unknown]
